FAERS Safety Report 13068681 (Version 2)
Quarter: 2017Q1

REPORT INFORMATION
  Report Type: Spontaneous
  Country: FR (occurrence: FR)
  Receive Date: 20161228
  Receipt Date: 20170331
  Transmission Date: 20170428
  Serious: Yes (Other)
  Sender: FDA-Public Use
  Company Number: FR-PFIZER INC-2016593204

PATIENT
  Age: 52 Year
  Sex: Female

DRUGS (19)
  1. PIPERACILLIN/TAZOBACTAM [Suspect]
     Active Substance: PIPERACILLIN SODIUM\TAZOBACTAM SODIUM
     Indication: PRODUCT USED FOR UNKNOWN INDICATION
     Dosage: UNK
     Route: 042
     Dates: start: 20161117, end: 20161130
  2. ULCAR /00434701/ [Concomitant]
     Dosage: UNK
     Dates: start: 20161124
  3. VERSATIS [Concomitant]
     Active Substance: LIDOCAINE
  4. PANTOPRAZOLE [Concomitant]
     Active Substance: PANTOPRAZOLE SODIUM
  5. INNOHEP [Concomitant]
     Active Substance: TINZAPARIN SODIUM
  6. ACICLOVIR [Suspect]
     Active Substance: ACYCLOVIR
     Indication: PRODUCT USED FOR UNKNOWN INDICATION
     Dosage: UNK
     Route: 042
     Dates: start: 20161128, end: 20161203
  7. CYMBALTA [Concomitant]
     Active Substance: DULOXETINE HYDROCHLORIDE
  8. NEFOPAM [Concomitant]
     Active Substance: NEFOPAM
  9. NIVESTIM [Concomitant]
     Active Substance: FILGRASTIM
     Dosage: UNK
     Dates: start: 20161124, end: 20161130
  10. ALPRAZOLAM. [Concomitant]
     Active Substance: ALPRAZOLAM
  11. ARACYTINE [Suspect]
     Active Substance: CYTARABINE
     Indication: B-CELL LYMPHOMA
     Dosage: UNK
     Route: 042
     Dates: start: 20161116, end: 20161120
  12. BISOCE [Concomitant]
     Active Substance: BISOPROLOL
  13. LAROXYL [Concomitant]
     Active Substance: AMITRIPTYLINE
  14. AMIKACINE /00391001/ [Suspect]
     Active Substance: AMIKACIN
     Indication: INFECTION
     Dosage: UNK
     Route: 042
     Dates: start: 20161129, end: 20161201
  15. HYDROXYZINE [Concomitant]
     Active Substance: HYDROXYZINE HYDROCHLORIDE
  16. ZOPHREN /00955302/ [Concomitant]
     Active Substance: ONDANSETRON
     Dosage: UNK
     Dates: start: 20161116, end: 20161120
  17. ETOPOSIDE. [Suspect]
     Active Substance: ETOPOSIDE
     Indication: B-CELL LYMPHOMA
     Dosage: UNK
     Route: 042
     Dates: start: 20161117, end: 20161120
  18. LEVETIRACETAM. [Concomitant]
     Active Substance: LEVETIRACETAM
  19. OXYNORM [Concomitant]
     Active Substance: OXYCODONE HYDROCHLORIDE

REACTIONS (5)
  - Hypokalaemia [Recovered/Resolved]
  - Hypernatraemia [Recovered/Resolved]
  - Polyuria [Recovered/Resolved]
  - Proteinuria [Recovered/Resolved]
  - Renal tubular disorder [Recovered/Resolved]

NARRATIVE: CASE EVENT DATE: 20161130
